FAERS Safety Report 10348139 (Version 1)
Quarter: 2014Q3

REPORT INFORMATION
  Report Type: Spontaneous
  Country: US (occurrence: US)
  Receive Date: 20140729
  Receipt Date: 20140729
  Transmission Date: 20150326
  Serious: Yes (Other)
  Sender: FDA-Public Use
  Company Number: US-ELI_LILLY_AND_COMPANY-US201407006564

PATIENT
  Sex: Female

DRUGS (3)
  1. ZYPREXA ZYDIS [Suspect]
     Active Substance: OLANZAPINE
     Indication: PSYCHOTIC DISORDER
     Dosage: 10 MG, UNKNOWN
  2. ZYPREXA ZYDIS [Suspect]
     Active Substance: OLANZAPINE
     Dosage: 5 MG, UNKNOWN
  3. LORAZEPAM. [Concomitant]
     Active Substance: LORAZEPAM

REACTIONS (15)
  - Malaise [Unknown]
  - Night sweats [Unknown]
  - Feeling abnormal [Unknown]
  - Aggression [Unknown]
  - Paranoia [Unknown]
  - Paraesthesia [Unknown]
  - Euphoric mood [Unknown]
  - Delusional perception [Unknown]
  - Insomnia [Unknown]
  - Self-injurious ideation [Unknown]
  - Hallucination, auditory [Recovered/Resolved]
  - Confusional state [Unknown]
  - Violence-related symptom [Unknown]
  - Hypersensitivity [Unknown]
  - Asthma [Unknown]
